FAERS Safety Report 8389854 (Version 2)
Quarter: 2013Q4

REPORT INFORMATION
  Report Type: Report from Study
  Country: CA (occurrence: CA)
  Receive Date: 20120203
  Receipt Date: 20131008
  Transmission Date: 20140711
  Serious: Yes (Life-Threatening, Hospitalization)
  Sender: FDA-Public Use
  Company Number: CA-PFIZER INC-2011214055

PATIENT
  Age: 16 Year
  Sex: Male
  Weight: 56.5 kg

DRUGS (9)
  1. ATORVASTATIN CALCIUM [Suspect]
     Indication: TYPE IIA HYPERLIPIDAEMIA
     Dosage: 10 MG, 1X/DAY
     Route: 048
     Dates: start: 20090526, end: 20101208
  2. ATORVASTATIN CALCIUM [Suspect]
     Dosage: 20 MG, 1X/DAY
     Route: 048
     Dates: start: 20101209, end: 20110517
  3. ATORVASTATIN CALCIUM [Suspect]
     Dosage: 40 MG, 1X/DAY
     Route: 048
     Dates: start: 20110518, end: 20110911
  4. ADVIL [Suspect]
     Dosage: 14400 MG, (72 TABLETS OF 200 MG) SINGLE
     Route: 048
     Dates: start: 20110911, end: 20110911
  5. ADVIL [Suspect]
     Dosage: 3000 MG, (30 TABLETS OF 100 MG) SINGLE
     Route: 048
     Dates: start: 20110911, end: 20110911
  6. BENADRYL [Suspect]
     Dosage: 1200 MG, (48 TABLETS OF 25 MG) SINGLE
     Route: 048
     Dates: start: 20110911, end: 20110911
  7. TYLENOL [Suspect]
     Dosage: 10000 MG, (20 TABLETS OF 500 MG) SINGLE
     Route: 048
     Dates: start: 20110911, end: 20110911
  8. PHENYLEPHRINE [Suspect]
     Dosage: 100 MG, (20 TABLETS OF 5 MG) SINGLE
     Route: 048
     Dates: start: 20110911, end: 20110911
  9. CHLORPHENIRAMINE [Suspect]
     Dosage: 20 MG, (10 TABLETS OF 2 MG) SINGLE
     Route: 048
     Dates: start: 20110911, end: 20110911

REACTIONS (1)
  - Suicide attempt [Recovered/Resolved]
